FAERS Safety Report 23149901 (Version 1)
Quarter: 2023Q4

REPORT INFORMATION
  Report Type: Report from Study
  Country: US (occurrence: US)
  Receive Date: 20231106
  Receipt Date: 20231106
  Transmission Date: 20240109
  Serious: Yes (Hospitalization, Other)
  Sender: FDA-Public Use
  Company Number: US-002147023-NVSC2022US281463

PATIENT
  Sex: Female

DRUGS (2)
  1. TREPROSTINIL [Suspect]
     Active Substance: TREPROSTINIL
     Indication: Pulmonary arterial hypertension
     Dosage: 28 NG/KG/MIN, CONT (STRENGTH: 1 MG/ML)
     Route: 042
     Dates: start: 20210222
  2. TREPROSTINIL [Suspect]
     Active Substance: TREPROSTINIL
     Dosage: 28 NG/KG/MIN, CONT (STRENGTH: 2.5 MG/ML)
     Route: 042
     Dates: start: 202104

REACTIONS (5)
  - Dyspnoea [Unknown]
  - Influenza [Unknown]
  - COVID-19 [Unknown]
  - Condition aggravated [Unknown]
  - Feeling abnormal [Unknown]
